FAERS Safety Report 19824396 (Version 1)
Quarter: 2021Q3

REPORT INFORMATION
  Report Type: Spontaneous
  Country: US (occurrence: US)
  Receive Date: 20210912
  Receipt Date: 20210912
  Transmission Date: 20211014
  Serious: Yes (Hospitalization)
  Sender: FDA-Public Use
  Company Number: None

PATIENT
  Sex: Male

DRUGS (1)
  1. ZIEXTENZO [Suspect]
     Active Substance: PEGFILGRASTIM-BMEZ
     Indication: NEUTROPENIA
     Dosage: OTHER DOSE:6MG/0.6ML;OTHER FREQUENCY:EVERY 21 DAYS;?
     Route: 058
     Dates: start: 20210907

REACTIONS (3)
  - Lyme disease [None]
  - Clostridium difficile infection [None]
  - Arthropod bite [None]
